FAERS Safety Report 6236653-5 (Version None)
Quarter: 2009Q2

REPORT INFORMATION
  Report Type: 
  Country: None (occurrence: None)
  Receive Date: 20090619
  Receipt Date: 20081217
  Transmission Date: 20091009
  Serious: No
  Sender: FDA-Public Use
  Company Number: US-ASTRAZENECA-2008UW26482

PATIENT
  Age: 53 Year
  Sex: Female
  Weight: 79.4 kg

DRUGS (8)
  1. ATACAND [Suspect]
     Indication: HYPERTENSION
     Route: 048
     Dates: start: 20000101
  2. ATACAND [Suspect]
     Route: 048
  3. ATACAND [Suspect]
     Route: 048
  4. ATACAND [Suspect]
     Route: 048
  5. ATACAND [Suspect]
     Route: 048
  6. COREG [Concomitant]
  7. HAWTHORNE BERRY [Concomitant]
  8. BLOOD PRESSURE MEDICATION [Concomitant]

REACTIONS (6)
  - BLOOD PRESSURE INCREASED [None]
  - DISTRACTIBILITY [None]
  - DIZZINESS [None]
  - DRUG INEFFECTIVE [None]
  - EUPHORIC MOOD [None]
  - TREATMENT NONCOMPLIANCE [None]
